FAERS Safety Report 9013681 (Version 2)
Quarter: 2013Q1

REPORT INFORMATION
  Report Type: Spontaneous
  Country: FR (occurrence: FR)
  Receive Date: 20130115
  Receipt Date: 20130207
  Transmission Date: 20140127
  Serious: Yes (Hospitalization)
  Sender: FDA-Public Use
  Company Number: FR-MERCK-1301FRA003718

PATIENT
  Age: 59 Year
  Sex: Male

DRUGS (19)
  1. TIENAM 500MG/500MG, POUDRE POUR PERFUSION [Suspect]
     Indication: WOUND INFECTION
     Dosage: UNK
     Route: 042
     Dates: start: 20120606, end: 20120610
  2. TIENAM 500MG/500MG, POUDRE POUR PERFUSION [Suspect]
     Dosage: UNK
     Route: 042
     Dates: start: 20120726, end: 20120731
  3. TAZOCILLINE [Suspect]
     Dosage: UNK
     Route: 042
     Dates: start: 20120610, end: 20120726
  4. LYRICA [Concomitant]
     Dosage: 75 MG, UNK
  5. LYRICA [Concomitant]
     Dosage: 100 MG, QD
  6. LASILIX [Concomitant]
     Dosage: 20 MG, QD
  7. DIFFU-K [Concomitant]
     Dosage: 600 MG, QD
  8. KARDEGIC [Concomitant]
     Dosage: 160 MG, QD
  9. PARIET [Concomitant]
     Dosage: 10 MG, QD
  10. EUPRESSYL [Concomitant]
     Dosage: 60 MG, QD
  11. TOPALGIC LP [Concomitant]
     Dosage: 100 MG, QD
  12. TOPALGIC (SUPROFEN) [Concomitant]
     Dosage: 50 MG, TID
  13. XATRAL [Concomitant]
     Dosage: 10 MG, QD
  14. ACETAMINOPHEN [Concomitant]
  15. CETIRIZINE HYDROCHLORIDE [Concomitant]
     Dosage: 10 MG, UNK
  16. POLARAMINE TABLETS [Concomitant]
     Dosage: 2 MG, BID
  17. LOVENOX [Concomitant]
  18. LANTUS [Concomitant]
  19. HUMALOG [Concomitant]
     Dosage: 6 IU, TID

REACTIONS (1)
  - Drug reaction with eosinophilia and systemic symptoms [Recovered/Resolved]
